FAERS Safety Report 5878532-9 (Version None)
Quarter: 2008Q3

REPORT INFORMATION
  Report Type: 
  Country: None (occurrence: None)
  Receive Date: 20080911
  Receipt Date: 20080909
  Transmission Date: 20090109
  Serious: Yes (Hospitalization)
  Sender: FDA-Public Use
  Company Number: JP-ABBOTT-06P-087-0333883-00

PATIENT
  Sex: Male

DRUGS (12)
  1. NORVIR [Suspect]
     Indication: HIV INFECTION
     Route: 048
     Dates: start: 20060112, end: 20070704
  2. NORVIR [Suspect]
     Route: 048
     Dates: start: 20070802, end: 20070806
  3. NORVIR [Suspect]
     Route: 048
     Dates: start: 20070807
  4. ATAZANAVIR SULFATE [Suspect]
     Indication: HIV INFECTION
     Route: 048
     Dates: start: 20060112, end: 20070704
  5. ATAZANAVIR SULFATE [Suspect]
     Route: 048
     Dates: start: 20070802, end: 20070806
  6. LAMIVUDINE/ABACAVIR SULFATE [Suspect]
     Indication: HIV INFECTION
     Route: 048
     Dates: start: 20060112, end: 20070704
  7. LAMIVUDINE/ABACAVIR SULFATE [Suspect]
     Route: 048
     Dates: start: 20070802
  8. DILAZEP DIHYDROCHLORIDE [Concomitant]
     Indication: NEPHROPATHY
     Route: 048
     Dates: start: 20060112, end: 20070704
  9. ZOPICLONE [Concomitant]
     Indication: INSOMNIA
     Route: 048
     Dates: start: 20050929, end: 20070704
  10. ZOPICLONE [Concomitant]
     Route: 048
     Dates: start: 20071030
  11. IMIDAPRIL HYDROCHLORIDE [Concomitant]
     Indication: IGA NEPHROPATHY
     Route: 048
     Dates: start: 20060629, end: 20070704
  12. FOSAMPRENAVIR [Concomitant]
     Indication: HIV INFECTION
     Route: 048
     Dates: start: 20070807

REACTIONS (4)
  - BLOOD BILIRUBIN INCREASED [None]
  - BLOOD TRIGLYCERIDES INCREASED [None]
  - CHOLELITHIASIS [None]
  - PANCREATITIS ACUTE [None]
